FAERS Safety Report 16947251 (Version 1)
Quarter: 2019Q4

REPORT INFORMATION
  Report Type: Spontaneous
  Country: US (occurrence: US)
  Receive Date: 20191022
  Receipt Date: 20191022
  Transmission Date: 20200122
  Serious: No
  Sender: FDA-Public Use
  Company Number: US-BECTON DICKINSON-2019BDN00166

PATIENT
  Sex: Male

DRUGS (1)
  1. CHLORAPREP WITH TINT [Suspect]
     Active Substance: CHLORHEXIDINE GLUCONATE\ISOPROPYL ALCOHOL
     Indication: INFECTION PROPHYLAXIS
     Dosage: UNK
     Route: 061
     Dates: start: 2012, end: 2012

REACTIONS (3)
  - Thermal burn [Unknown]
  - Wrong technique in product usage process [Recovered/Resolved]
  - Product caught fire [Recovered/Resolved]

NARRATIVE: CASE EVENT DATE: 2012
